FAERS Safety Report 21966699 (Version 1)
Quarter: 2023Q1

REPORT INFORMATION
  Report Type: Spontaneous
  Country: US (occurrence: US)
  Receive Date: 20230208
  Receipt Date: 20230208
  Transmission Date: 20230418
  Serious: Yes (Hospitalization, Other)
  Sender: FDA-Public Use
  Company Number: US-BoehringerIngelheim-2023-BI-216142

PATIENT
  Age: 14 Year
  Sex: Male

DRUGS (1)
  1. IPRATROPIUM BROMIDE [Suspect]
     Active Substance: IPRATROPIUM BROMIDE
     Indication: Airway secretion clearance therapy
     Dosage: NEBULIZED
     Route: 055

REACTIONS (2)
  - Pneumothorax [Unknown]
  - Anisocoria [Recovered/Resolved]
